FAERS Safety Report 5399550-3 (Version None)
Quarter: 2007Q3

REPORT INFORMATION
  Report Type: 
  Country: None (occurrence: None)
  Receive Date: 20070727
  Receipt Date: 20070718
  Transmission Date: 20080115
  Serious: Yes (Other)
  Sender: FDA-Public Use
  Company Number: CA-PFIZER INC-2007050624

PATIENT
  Sex: Female
  Weight: 74.8 kg

DRUGS (10)
  1. LYRICA [Suspect]
     Indication: INTERVERTEBRAL DISC COMPRESSION
     Route: 048
  2. LYRICA [Interacting]
     Indication: ARTHRALGIA
  3. LYRICA [Interacting]
     Indication: NEURALGIA
  4. PREDNISONE [Interacting]
     Indication: URTICARIA
     Route: 048
     Dates: start: 20070614, end: 20070620
  5. PERCOCET [Concomitant]
     Indication: PAIN
     Route: 048
  6. NABUMETONE [Concomitant]
     Indication: ARTHRITIS
     Route: 048
  7. NABUMETONE [Concomitant]
     Indication: PAIN
  8. ACTONEL [Concomitant]
     Route: 048
  9. ACETAMINOPHEN [Concomitant]
     Indication: ARTHRITIS
  10. LORATADINE [Concomitant]
     Indication: HYPERSENSITIVITY

REACTIONS (5)
  - DRUG INTERACTION [None]
  - HEADACHE [None]
  - INSOMNIA [None]
  - NAUSEA [None]
  - PAIN [None]
